FAERS Safety Report 4277708-4 (Version None)
Quarter: 2004Q1

REPORT INFORMATION
  Report Type: 
  Country: None (occurrence: None)
  Receive Date: 20040123
  Receipt Date: 20031219
  Transmission Date: 20041129
  Serious: Yes (Hospitalization, Other)
  Sender: FDA-Public Use
  Company Number: PHNU2003DE04462

PATIENT
  Age: 57 Year
  Sex: Male

DRUGS (17)
  1. SANDIMMUNE [Suspect]
     Indication: HEART TRANSPLANT
     Dosage: 80 MG, BID
     Dates: start: 20010308
  2. CELLCEPT [Concomitant]
     Dosage: 500 MG, BID
  3. PREDNI-H-TABLINEN [Concomitant]
     Dosage: 7.5 MG, QD
  4. ZIMOVANE [Concomitant]
  5. ALLOPURINOL [Concomitant]
     Dosage: 300 MG, QD
  6. METOPROLOL SUCCINATE [Concomitant]
     Dosage: .5 DF, TID
  7. OMIX [Concomitant]
  8. VIGANTOLETTEN ^MERCK^ [Concomitant]
     Dosage: 1000 MG, QD
  9. ACETYLSALICYLIC ACID SRT [Concomitant]
     Dosage: 100 MG, QD
  10. PRAVASIN [Concomitant]
     Dosage: 20 MG, QD
  11. OMNIC [Concomitant]
     Dosage: .4 MG, QD
  12. LIMPTAR N [Concomitant]
     Dosage: 1 DF, QD
  13. MAGNESIUM VERLA N DRAGEES [Concomitant]
     Dosage: 1 DF, TID
  14. CALCIUM [Concomitant]
     Dosage: 1000 MG, QD
  15. XIMOVAN ^AVENTIS PHARMA^ [Concomitant]
     Dosage: 1.5 DF, QD
  16. XYLOMETAZOLINE [Concomitant]
     Dosage: UNK, PRN
  17. VALORON N [Concomitant]

REACTIONS (32)
  - ARTERIAL OCCLUSIVE DISEASE [None]
  - ATAXIA [None]
  - BLOOD FOLATE DECREASED [None]
  - CEREBELLAR SYNDROME [None]
  - CORNEAL LIGHT REFLEX TEST ABNORMAL [None]
  - DEPRESSED MOOD [None]
  - FALL [None]
  - FOLATE DEFICIENCY [None]
  - GAIT DISTURBANCE [None]
  - GASTROINTESTINAL INFECTION [None]
  - HERPES ZOSTER [None]
  - HERPES ZOSTER OPHTHALMIC [None]
  - HOMOCYSTINAEMIA [None]
  - HYPERHOMOCYSTEINAEMIA [None]
  - HYPOAESTHESIA [None]
  - HYPOREFLEXIA [None]
  - MUSCLE ATROPHY [None]
  - MUSCULAR WEAKNESS [None]
  - NEOPLASM [None]
  - NEURALGIA [None]
  - NEUROTOXICITY [None]
  - PAIN [None]
  - PALLANAESTHESIA [None]
  - PARESIS [None]
  - POLYNEUROPATHY [None]
  - POLYNEUROPATHY TOXIC [None]
  - POSITIVE ROMBERGISM [None]
  - PRURITUS [None]
  - RENAL FAILURE CHRONIC [None]
  - SKIN REACTION [None]
  - VERTEBRAL ARTERY OCCLUSION [None]
  - WEIGHT DECREASED [None]
